FAERS Safety Report 18974060 (Version 1)
Quarter: 2021Q1

REPORT INFORMATION
  Report Type: Spontaneous
  Country: US (occurrence: US)
  Receive Date: 20210305
  Receipt Date: 20210305
  Transmission Date: 20210420
  Serious: No
  Sender: FDA-Public Use
  Company Number: US-MYLANLABS-2021M1012763

PATIENT
  Sex: Female
  Weight: 69 kg

DRUGS (1)
  1. LEVOTHYROXINE. [Suspect]
     Active Substance: LEVOTHYROXINE
     Indication: HYPOTHYROIDISM
     Dosage: 75 MICROGRAM, QD (1 DOSAGE FORM)

REACTIONS (5)
  - Vision blurred [Recovering/Resolving]
  - Abdominal discomfort [Recovering/Resolving]
  - Pain in extremity [Recovering/Resolving]
  - Abdominal pain upper [Recovering/Resolving]
  - Headache [Recovering/Resolving]
